FAERS Safety Report 7073585-7 (Version None)
Quarter: 2010Q4

REPORT INFORMATION
  Report Type: 
  Country: None (occurrence: None)
  Receive Date: 20101029
  Receipt Date: 20100813
  Transmission Date: 20110411
  Serious: No
  Sender: FDA-Public Use
  Company Number: A0870204A

PATIENT
  Age: 61 Year
  Sex: Male
  Weight: 136.4 kg

DRUGS (13)
  1. ADVAIR DISKUS 100/50 [Suspect]
     Indication: PRODUCT USED FOR UNKNOWN INDICATION
     Dosage: 1PUFF TWICE PER DAY
     Route: 055
     Dates: start: 20040101
  2. SYNTHROID [Concomitant]
  3. CLONAZEPAM [Concomitant]
  4. DARVOCET [Concomitant]
  5. FUROSEMIDE [Concomitant]
  6. VITAMIN D [Concomitant]
  7. SIMVASTATIN [Concomitant]
  8. OMEPRAZOLE [Concomitant]
  9. SINGULAIR [Concomitant]
  10. LANTUS [Concomitant]
  11. HUMALOG [Concomitant]
  12. LISINOPRIL [Concomitant]
  13. LEXAPRO [Concomitant]

REACTIONS (2)
  - DYSPNOEA [None]
  - PRODUCT QUALITY ISSUE [None]
